FAERS Safety Report 4677139-9 (Version None)
Quarter: 2005Q2

REPORT INFORMATION
  Report Type: 
  Country: None (occurrence: None)
  Receive Date: 20050525
  Receipt Date: 20050525
  Transmission Date: 20051028
  Serious: No
  Sender: FDA-Public Use
  Company Number: None

PATIENT
  Sex: Female
  Weight: 56 kg

DRUGS (8)
  1. PENTOSTATINE [Suspect]
     Indication: GRAFT VERSUS HOST DISEASE
     Dosage: 4 MG/M2, IV, EVERY TWO WEEKS
     Route: 042
     Dates: start: 20050406
  2. SEPTRA [Concomitant]
  3. VALTREX [Concomitant]
  4. VICODEN [Concomitant]
  5. CELLECEPT [Concomitant]
  6. FLUCONAZOLE [Concomitant]
  7. PREDNISONE TAB [Concomitant]
  8. PROGRAF [Concomitant]

REACTIONS (5)
  - BLOOD CREATININE INCREASED [None]
  - DIARRHOEA [None]
  - MUSCLE SPASMS [None]
  - NAUSEA [None]
  - VOMITING [None]
